FAERS Safety Report 11910600 (Version 1)
Quarter: 2016Q1

REPORT INFORMATION
  Report Type: Spontaneous
  Country: US (occurrence: None)
  Receive Date: 20160111
  Receipt Date: 20160111
  Transmission Date: 20160526
  Serious: Yes (Hospitalization)
  Sender: FDA-Public Use
  Company Number: None

PATIENT
  Age: 65 Year
  Sex: Female
  Weight: 98.88 kg

DRUGS (5)
  1. TYLENOL [Concomitant]
     Active Substance: ACETAMINOPHEN
  2. BABY ASPIRIN [Concomitant]
     Active Substance: ASPIRIN
  3. AMLODIPINE BESYLATE. [Concomitant]
     Active Substance: AMLODIPINE BESYLATE
  4. RANITIDINE [Concomitant]
     Active Substance: RANITIDINE\RANITIDINE HYDROCHLORIDE
  5. INDOMETHACIN ER [Suspect]
     Active Substance: INDOMETHACIN
     Indication: POLYARTHRITIS
     Dosage: 1 PILL
     Route: 048
     Dates: start: 20150924, end: 20150930

REACTIONS (2)
  - Muscle spasms [None]
  - Ankle fracture [None]

NARRATIVE: CASE EVENT DATE: 20150930
